FAERS Safety Report 6665441-0 (Version None)
Quarter: 2010Q2

REPORT INFORMATION
  Report Type: 
  Country: None (occurrence: None)
  Receive Date: 20100402
  Receipt Date: 20100325
  Transmission Date: 20101027
  Serious: Yes (Hospitalization, Other)
  Sender: FDA-Public Use
  Company Number: US-PFIZER INC-2010039534

PATIENT
  Sex: Female
  Weight: 53 kg

DRUGS (12)
  1. PROVERA [Suspect]
     Indication: MENOPAUSAL SYMPTOMS
     Dosage: 2.5 MG, 1X/DAY
  2. PROVERA [Suspect]
     Dosage: 25 MG, 1X/DAY
     Dates: start: 20100301, end: 20100301
  3. ESTRADIOL [Concomitant]
  4. FRAGMIN [Concomitant]
  5. TYLENOL-500 [Concomitant]
     Dosage: AS NEEDED
  6. ALBUTEROL [Concomitant]
     Dosage: AS NEEDED
  7. XANAX [Concomitant]
  8. BACLOFEN [Concomitant]
  9. CELEXA [Concomitant]
  10. GLYCOPYRROLATE [Concomitant]
  11. GUAIFENESIN [Concomitant]
  12. GALENIC /DOCUSATE/SENNA/ [Concomitant]

REACTIONS (4)
  - HAEMORRHAGIC STROKE [None]
  - INCORRECT DOSE ADMINISTERED [None]
  - LIVER FUNCTION TEST ABNORMAL [None]
  - NAUSEA [None]
